FAERS Safety Report 6129463-0 (Version None)
Quarter: 2009Q1

REPORT INFORMATION
  Report Type: 
  Country: None (occurrence: None)
  Receive Date: 20090323
  Receipt Date: 20090323
  Transmission Date: 20090719
  Serious: Yes (Life-Threatening, Other)
  Sender: FDA-Public Use
  Company Number: None

PATIENT
  Age: 36 Year
  Sex: Female
  Weight: 124.7392 kg

DRUGS (2)
  1. SEROQUEL [Suspect]
     Indication: BIPOLAR I DISORDER
     Dosage: 400 MG 1 DAILY AT NIGHT
     Dates: start: 20080601, end: 20081031
  2. CYMBALTA [Suspect]
     Indication: DEPRESSION
     Dosage: 60 MG 2 DAILY
     Dates: start: 20080601, end: 20081031

REACTIONS (9)
  - ABNORMAL BEHAVIOUR [None]
  - ASTHENIA [None]
  - BLOOD CHOLESTEROL INCREASED [None]
  - CATARACT [None]
  - EYE DISORDER [None]
  - HYPERTENSION [None]
  - THINKING ABNORMAL [None]
  - TYPE 2 DIABETES MELLITUS [None]
  - WEIGHT INCREASED [None]
